FAERS Safety Report 11388825 (Version 2)
Quarter: 2020Q4

REPORT INFORMATION
  Report Type: Report from Study
  Country: CZ (occurrence: CZ)
  Receive Date: 20150817
  Receipt Date: 20201225
  Transmission Date: 20210113
  Serious: Yes (Hospitalization)
  Sender: FDA-Public Use
  Company Number: CZ-BAXALTA-2015BLT001034

PATIENT
  Age: 1 Year
  Sex: Male
  Weight: 10.6 kg

DRUGS (12)
  1. ADVATE [Suspect]
     Active Substance: ANTIHEMOPHILIC FACTOR, HUMAN RECOMBINANT
     Indication: PROPHYLAXIS
     Dosage: 250 IU, ONCE
     Route: 042
     Dates: start: 20150709, end: 20150709
  2. ADVATE [Suspect]
     Active Substance: ANTIHEMOPHILIC FACTOR, HUMAN RECOMBINANT
     Indication: PROPHYLAXIS
     Dosage: 250 IU, ONCE
     Route: 042
     Dates: start: 20150709, end: 20150709
  3. OSPAMOX [Concomitant]
     Active Substance: AMOXICILLIN
     Indication: PRODUCT USED FOR UNKNOWN INDICATION
     Dosage: 4 MILLILITER, 3 TIMES PER DAY
     Route: 065
     Dates: start: 20180205, end: 20180215
  4. ADVATE [Suspect]
     Active Substance: ANTIHEMOPHILIC FACTOR, HUMAN RECOMBINANT
     Indication: FACTOR VIII DEFICIENCY
     Dosage: 500 INTERNATIONAL UNIT
     Route: 042
     Dates: start: 20191004
  5. ADVATE [Suspect]
     Active Substance: ANTIHEMOPHILIC FACTOR, HUMAN RECOMBINANT
     Indication: FACTOR VIII DEFICIENCY
     Dosage: 500 INTERNATIONAL UNIT
     Route: 042
     Dates: start: 20191004
  6. DICYNONE [Concomitant]
     Active Substance: ETHAMSYLATE
     Indication: PRODUCT USED FOR UNKNOWN INDICATION
     Dosage: 250 MILLIGRAM, 3 TIMES PER DAY
     Route: 065
     Dates: start: 20191007, end: 20191009
  7. ADVATE [Suspect]
     Active Substance: ANTIHEMOPHILIC FACTOR, HUMAN RECOMBINANT
     Indication: PROPHYLAXIS
     Dosage: 250 IU, ONCE
     Route: 042
     Dates: start: 20150709, end: 20150709
  8. ADVATE [Suspect]
     Active Substance: ANTIHEMOPHILIC FACTOR, HUMAN RECOMBINANT
     Indication: FACTOR VIII DEFICIENCY
     Dosage: 500 INTERNATIONAL UNIT
     Route: 042
     Dates: start: 20191004
  9. COLECALCIFEROCAPS [Concomitant]
     Indication: RICKETS
     Dosage: 500 IU, 1X A DAY
     Route: 065
     Dates: start: 20140618
  10. EXACYL [Concomitant]
     Active Substance: TRANEXAMIC ACID
     Indication: PRODUCT USED FOR UNKNOWN INDICATION
     Dosage: 200 MILLIGRAM, TWICE PER DAY
     Dates: start: 20191009
  11. CLARITHROMYCINUM [Concomitant]
     Indication: CAMPYLOBACTER COLITIS
     Dosage: 62.5 MILLIGRAM, TWICE PER DAY
     Route: 065
     Dates: start: 20151112, end: 20151119
  12. COLECALCIFEROLUM [Concomitant]
     Indication: RICKETS
     Dosage: 500 INTERNATIONAL UNIT, QD
     Route: 065
     Dates: start: 20140618, end: 20140831

REACTIONS (2)
  - Gastroenteritis rotavirus [Recovered/Resolved]
  - Dental caries [Recovered/Resolved]

NARRATIVE: CASE EVENT DATE: 20150712
